FAERS Safety Report 5413401-X (Version None)
Quarter: 2007Q3

REPORT INFORMATION
  Report Type: 
  Country: None (occurrence: None)
  Receive Date: 20070814
  Receipt Date: 20070806
  Transmission Date: 20080115
  Serious: Yes (Other)
  Sender: FDA-Public Use
  Company Number: US-ASTRAZENECA-2007UW18993

PATIENT
  Age: 73 Year
  Sex: Female

DRUGS (5)
  1. ARIMIDEX [Suspect]
     Indication: BREAST CANCER
     Route: 048
     Dates: start: 20070801
  2. PEPCID [Concomitant]
  3. SYNTHROID [Concomitant]
  4. BLOOD PRESSURE PILL [Concomitant]
  5. WATER PILL [Concomitant]

REACTIONS (2)
  - NECK PAIN [None]
  - VISION BLURRED [None]
